FAERS Safety Report 5353914-2 (Version None)
Quarter: 2007Q2

REPORT INFORMATION
  Report Type: 
  Country: None (occurrence: None)
  Receive Date: 20070612
  Receipt Date: 20070604
  Transmission Date: 20071010
  Serious: Yes (Other)
  Sender: FDA-Public Use
  Company Number: AU-AVENTIS-200715120GDDC

PATIENT
  Age: 36 Year
  Sex: Female

DRUGS (3)
  1. LANTUS [Suspect]
     Route: 058
  2. AUTOPEN INSULIN INJECTION PEN [Suspect]
     Route: 058
  3. ACTRAPID [Concomitant]
     Route: 058

REACTIONS (2)
  - EYE HAEMORRHAGE [None]
  - FURUNCLE [None]
